FAERS Safety Report 24189346 (Version 1)
Quarter: 2024Q3

REPORT INFORMATION
  Report Type: Spontaneous
  Country: CN (occurrence: CN)
  Receive Date: 20240808
  Receipt Date: 20240808
  Transmission Date: 20241017
  Serious: Yes (Life-Threatening, Other)
  Sender: PFIZER
  Company Number: CN-PFIZER INC-PV202400101658

PATIENT
  Age: 31 Year
  Sex: Male

DRUGS (23)
  1. MEROPENEM [Suspect]
     Active Substance: MEROPENEM
     Indication: Intracranial infection
     Dosage: 1 G, 3X/DAY
     Route: 042
     Dates: start: 20210713, end: 20210715
  2. MEROPENEM [Suspect]
     Active Substance: MEROPENEM
     Dosage: 2 G, 3X/DAY
     Route: 042
     Dates: start: 20210716, end: 20210716
  3. MEROPENEM [Suspect]
     Active Substance: MEROPENEM
     Dosage: 2 G, 3X/DAY
     Route: 042
     Dates: start: 20210719, end: 20210721
  4. MEROPENEM [Suspect]
     Active Substance: MEROPENEM
     Dosage: 2 G, 3X/DAY
     Route: 042
     Dates: start: 20210723, end: 20210725
  5. MEROPENEM [Suspect]
     Active Substance: MEROPENEM
     Dosage: 1 G, 3X/DAY
     Route: 042
     Dates: start: 20210729, end: 20210729
  6. MEROPENEM [Suspect]
     Active Substance: MEROPENEM
     Dosage: 1 G, 3X/DAY
     Route: 042
     Dates: start: 20210804, end: 20210804
  7. MEROPENEM [Suspect]
     Active Substance: MEROPENEM
     Dosage: 1 G, 3X/DAY
     Route: 042
     Dates: start: 20210807, end: 20210807
  8. VANCOMYCIN [Concomitant]
     Active Substance: VANCOMYCIN
     Indication: Intracranial infection
     Dosage: 1 G, 2X/DAY
     Route: 042
     Dates: start: 20210716, end: 20210716
  9. VANCOMYCIN [Concomitant]
     Active Substance: VANCOMYCIN
     Dosage: 1 G, 2X/DAY
     Route: 042
     Dates: start: 20210719, end: 20210721
  10. VANCOMYCIN [Concomitant]
     Active Substance: VANCOMYCIN
     Dosage: 1 G, 2X/DAY
     Route: 042
     Dates: start: 20210723, end: 20210725
  11. TIGECYCLINE [Concomitant]
     Active Substance: TIGECYCLINE
     Indication: Intracranial infection
     Dosage: 100 MG, 2X/DAY
     Route: 042
     Dates: start: 20210719, end: 20210721
  12. TIGECYCLINE [Concomitant]
     Active Substance: TIGECYCLINE
     Dosage: 5 MG, 1X/DAY
     Route: 037
     Dates: start: 20210719, end: 20210721
  13. TIGECYCLINE [Concomitant]
     Active Substance: TIGECYCLINE
     Dosage: 100 MG, 2X/DAY
     Route: 042
     Dates: start: 20210723, end: 20210725
  14. TIGECYCLINE [Concomitant]
     Active Substance: TIGECYCLINE
     Dosage: 5 MG, 1X/DAY
     Route: 037
     Dates: start: 20210723, end: 20210725
  15. TIGECYCLINE [Concomitant]
     Active Substance: TIGECYCLINE
     Dosage: 100 MG, 2X/DAY
     Route: 042
     Dates: start: 20210729, end: 20210729
  16. TIGECYCLINE [Concomitant]
     Active Substance: TIGECYCLINE
     Dosage: 5 MG, 1X/DAY
     Route: 037
     Dates: start: 20210729, end: 20210729
  17. TIGECYCLINE [Concomitant]
     Active Substance: TIGECYCLINE
     Dosage: 100 MG, 2X/DAY
     Route: 042
     Dates: start: 20210804, end: 20210804
  18. TIGECYCLINE [Concomitant]
     Active Substance: TIGECYCLINE
     Dosage: 5 MG, 1X/DAY
     Route: 037
     Dates: start: 20210804, end: 20210804
  19. TIGECYCLINE [Concomitant]
     Active Substance: TIGECYCLINE
     Dosage: 100 MG, 2X/DAY
     Route: 042
     Dates: start: 20210807, end: 20210807
  20. TIGECYCLINE [Concomitant]
     Active Substance: TIGECYCLINE
     Dosage: 5 MG, 1X/DAY
     Route: 037
     Dates: start: 20210807, end: 20210807
  21. POLYMYXIN B [Concomitant]
     Active Substance: POLYMYXIN B
     Indication: Intracranial infection
     Dosage: 50000 IU, 1X/DAY
     Route: 037
     Dates: start: 20210723, end: 20210725
  22. POLYMYXIN B [Concomitant]
     Active Substance: POLYMYXIN B
     Dosage: 50000 IU, 1X/DAY
     Route: 037
     Dates: start: 20210729, end: 20210729
  23. POLYMYXIN B [Concomitant]
     Active Substance: POLYMYXIN B
     Dosage: 50000 IU, 1X/DAY
     Route: 037
     Dates: start: 20210804, end: 20210804

REACTIONS (1)
  - Drug resistance [Recovered/Resolved]

NARRATIVE: CASE EVENT DATE: 20210101
